FAERS Safety Report 6182505-9 (Version None)
Quarter: 2009Q2

REPORT INFORMATION
  Report Type: 
  Country: None (occurrence: None)
  Receive Date: 20090507
  Receipt Date: 20090504
  Transmission Date: 20091009
  Serious: Yes (Hospitalization)
  Sender: FDA-Public Use
  Company Number: IT-ROCHE-631169

PATIENT
  Sex: Male

DRUGS (2)
  1. ROCEPHIN [Suspect]
     Indication: PHARYNGITIS
     Route: 030
     Dates: start: 20090502, end: 20090502
  2. TACHIPIRINA [Concomitant]
     Indication: HYPERPYREXIA
     Route: 054
     Dates: start: 20090501, end: 20090503

REACTIONS (4)
  - ASTHENIA [None]
  - ERYTHEMA [None]
  - LARYNGOSPASM [None]
  - VOMITING [None]
